FAERS Safety Report 13644561 (Version 1)
Quarter: 2017Q2

REPORT INFORMATION
  Report Type: Spontaneous
  Country: US (occurrence: US)
  Receive Date: 20170612
  Receipt Date: 20170612
  Transmission Date: 20170830
  Serious: No
  Sender: FDA-Public Use
  Company Number: US-ROCHE-1482818

PATIENT
  Sex: Female

DRUGS (1)
  1. XELODA [Suspect]
     Active Substance: CAPECITABINE
     Indication: BREAST CANCER METASTATIC
     Route: 065

REACTIONS (6)
  - Weight increased [Unknown]
  - Fatigue [Unknown]
  - Abdominal pain [Recovered/Resolved]
  - Tongue disorder [Unknown]
  - Diarrhoea [Recovered/Resolved]
  - Chest pain [Unknown]
